FAERS Safety Report 5596431-7 (Version None)
Quarter: 2008Q1

REPORT INFORMATION
  Report Type: 
  Country: None (occurrence: None)
  Receive Date: 20080118
  Receipt Date: 20080109
  Transmission Date: 20080703
  Serious: Yes (Life-Threatening, Hospitalization, Disabling)
  Sender: FDA-Public Use
  Company Number: JP-PFIZER INC-2007049918

PATIENT
  Sex: Male
  Weight: 56 kg

DRUGS (10)
  1. GABAPEN [Suspect]
     Indication: EPILEPSY
     Route: 048
     Dates: start: 20070424, end: 20070521
  2. GABAPEN [Suspect]
     Indication: COMPLEX REGIONAL PAIN SYNDROME
  3. ROCEPHIN [Suspect]
     Indication: PYREXIA
     Route: 042
     Dates: start: 20070524, end: 20070524
  4. LOXONIN [Suspect]
     Indication: PYREXIA
     Route: 048
     Dates: start: 20070523, end: 20070523
  5. TEGRETOL [Concomitant]
     Route: 048
     Dates: start: 20060101, end: 20070619
  6. PHENOBAL [Concomitant]
     Dosage: DAILY DOSE:150MG
     Route: 048
     Dates: start: 20060101, end: 20070702
  7. DEPAKENE [Concomitant]
     Dosage: DAILY DOSE:800MG
     Route: 048
  8. SOLANAX [Concomitant]
     Route: 048
     Dates: start: 20070502, end: 20070525
  9. TERNELIN [Concomitant]
     Dosage: DAILY DOSE:2MG
     Route: 048
     Dates: start: 20070201, end: 20070525
  10. TRYPTANOL [Concomitant]
     Route: 048
     Dates: start: 20070501, end: 20070525

REACTIONS (3)
  - EOSINOPHIL COUNT INCREASED [None]
  - PYREXIA [None]
  - RENAL FAILURE ACUTE [None]
